FAERS Safety Report 7311185-1 (Version None)
Quarter: 2011Q1

REPORT INFORMATION
  Report Type: 
  Country: None (occurrence: None)
  Receive Date: 20110214
  Receipt Date: 20110204
  Transmission Date: 20110831
  Serious: Yes (Hospitalization)
  Sender: FDA-Public Use
  Company Number: 2011027566

PATIENT
  Age: 74 Year
  Sex: Male

DRUGS (5)
  1. DALTEPARIN SODIUM [Suspect]
     Indication: LUNG NEOPLASM MALIGNANT
     Dates: start: 20110117
  2. CARBOPLATIN [Suspect]
     Dosage: 640 MG, SINGLE, INTRAVNEOUS
     Route: 042
     Dates: start: 20110118, end: 20110118
  3. DEXAMETHASONE (DEXAMETHASONE) [Concomitant]
  4. OMEPRAZOLE (OMEPRAZOL)01/31/2011 TO ONGOING [Concomitant]
  5. GEMCITABINE(GEMCITABINE)01/18/2011 T0 01/25/2011 [Concomitant]

REACTIONS (4)
  - MALAISE [None]
  - PLATELET COUNT DECREASED [None]
  - DYSPNOEA [None]
  - NEUTROPHIL COUNT DECREASED [None]
